FAERS Safety Report 9973131 (Version 1)
Quarter: 2014Q1

REPORT INFORMATION
  Report Type: Spontaneous
  Country: US (occurrence: None)
  Receive Date: 20140214
  Receipt Date: 20140214
  Transmission Date: 20141002
  Serious: Yes (Other)
  Sender: FDA-Public Use
  Company Number: 2013010071

PATIENT
  Age: 45 Year
  Sex: Female
  Weight: 58.97 kg

DRUGS (2)
  1. ELESTRIN [Suspect]
     Indication: MENOPAUSAL SYMPTOMS
     Dosage: 2 DOSAGE FORMS (1 DOSAGE FORMS, 2 IN 1 D), TOPICAL
     Route: 061
     Dates: start: 20121115, end: 20121201
  2. ARMOUR THYROID(DESSICATED NATURAL THYROID) [Concomitant]

REACTIONS (2)
  - Cholelithiasis [None]
  - Haemangioma of liver [None]
